FAERS Safety Report 10420879 (Version 1)
Quarter: 2014Q3

REPORT INFORMATION
  Report Type: Spontaneous
  Country: CN (occurrence: None)
  Receive Date: 20140812
  Receipt Date: 20140812
  Transmission Date: 20150326
  Serious: Yes (Hospitalization)
  Sender: FDA-Public Use
  Company Number: GAM-241-14-CH

PATIENT
  Age: 6 Year
  Sex: Female

DRUGS (5)
  1. SALBUTAMOL [Concomitant]
     Active Substance: ALBUTEROL
  2. SODIUM CHLORIDE. [Concomitant]
     Active Substance: SODIUM CHLORIDE
  3. AZITHROMYCIN [Concomitant]
     Active Substance: AZITHROMYCIN ANHYDROUS
  4. FLUCASONE [Concomitant]
  5. OCTAGAM IMMUNE GLOBULIN (HUMAN) [Suspect]
     Active Substance: HUMAN IMMUNOGLOBULIN G
     Indication: HYPOGAMMAGLOBULINAEMIA
     Route: 042
     Dates: start: 20140626, end: 20140626

REACTIONS (7)
  - Pyrexia [None]
  - Sinus bradycardia [None]
  - Headache [None]
  - Blood pressure decreased [None]
  - Swelling face [None]
  - Crying [None]
  - Abdominal pain upper [None]

NARRATIVE: CASE EVENT DATE: 20140626
